FAERS Safety Report 5524688-7 (Version None)
Quarter: 2007Q4

REPORT INFORMATION
  Report Type: 
  Country: None (occurrence: None)
  Receive Date: 20071123
  Receipt Date: 20071115
  Transmission Date: 20080405
  Serious: Yes (Other)
  Sender: FDA-Public Use
  Company Number: US-PFIZER INC-2007095671

PATIENT
  Age: 39 Year
  Sex: Male
  Weight: 104.8 kg

DRUGS (2)
  1. SUTENT [Suspect]
     Indication: MALIGNANT MELANOMA
     Route: 048
  2. BEVACIZUMAB [Suspect]
     Indication: MALIGNANT MELANOMA
     Route: 042

REACTIONS (2)
  - GASTROINTESTINAL NECROSIS [None]
  - TUMOUR NECROSIS [None]
